FAERS Safety Report 15553939 (Version 1)
Quarter: 2018Q4

REPORT INFORMATION
  Report Type: Spontaneous
  Country: US (occurrence: US)
  Receive Date: 20181022
  Receipt Date: 20181022
  Transmission Date: 20190205
  Serious: Yes (Life-Threatening, Hospitalization, Disabling)
  Sender: FDA-Public Use
  Company Number: None

PATIENT
  Age: 73 Year
  Sex: Female
  Weight: 87.54 kg

DRUGS (10)
  1. BUMEX [Concomitant]
     Active Substance: BUMETANIDE
  2. ZOLOFT [Concomitant]
     Active Substance: SERTRALINE HYDROCHLORIDE
  3. CALCIUM W/VIT D [Concomitant]
  4. VICTOZA [Suspect]
     Active Substance: LIRAGLUTIDE
     Indication: DIABETES MELLITUS
     Route: 058
     Dates: end: 20180401
  5. LANTUS [Concomitant]
     Active Substance: INSULIN GLARGINE
  6. EX. STRENGTH TYLENOL [Concomitant]
  7. IMBUR [Concomitant]
  8. HUMALOG [Concomitant]
     Active Substance: INSULIN LISPRO
  9. PLAVIX [Concomitant]
     Active Substance: CLOPIDOGREL BISULFATE
  10. METOPROLOL. [Concomitant]
     Active Substance: METOPROLOL

REACTIONS (5)
  - Bile duct stone [None]
  - Vomiting [None]
  - Liver function test abnormal [None]
  - Dysphonia [None]
  - Dyspepsia [None]

NARRATIVE: CASE EVENT DATE: 20180331
